FAERS Safety Report 12673672 (Version 2)
Quarter: 2016Q3

REPORT INFORMATION
  Report Type: Report from Study
  Country: AU (occurrence: AU)
  Receive Date: 20160822
  Receipt Date: 20160825
  Transmission Date: 20161109
  Serious: Yes (Other)
  Sender: FDA-Public Use
  Company Number: AU-JNJFOC-20160803607

PATIENT
  Sex: Male

DRUGS (1)
  1. STELARA [Suspect]
     Active Substance: USTEKINUMAB
     Indication: PSORIASIS
     Route: 058
     Dates: start: 20160721

REACTIONS (5)
  - Psoriasis [Unknown]
  - Skin ulcer [Unknown]
  - Pharyngitis [Unknown]
  - Infected skin ulcer [Unknown]
  - Rheumatoid arthritis [Unknown]
